FAERS Safety Report 8525309-1 (Version None)
Quarter: 2012Q3

REPORT INFORMATION
  Report Type: 
  Country: None (occurrence: None)
  Receive Date: 20120720
  Receipt Date: 20120718
  Transmission Date: 20120928
  Serious: Yes (Death)
  Sender: FDA-Public Use
  Company Number: BR-B.I. PHARMACEUTICALS,INC./RIDGEFIELD-2012-BR-00795BR

PATIENT
  Sex: Female

DRUGS (4)
  1. CAPTOPRIL [Concomitant]
     Indication: HYPERTENSION
  2. PRADAXA [Suspect]
     Indication: THROMBOSIS
     Dosage: 220 MG
     Route: 048
     Dates: start: 20120621, end: 20120627
  3. EPREX [Concomitant]
     Indication: DEMENTIA ALZHEIMER'S TYPE
  4. INSULIN [Concomitant]
     Indication: DIABETES MELLITUS

REACTIONS (2)
  - PNEUMONIA [None]
  - RESPIRATORY FAILURE [None]
